FAERS Safety Report 20403522 (Version 1)
Quarter: 2022Q1

REPORT INFORMATION
  Report Type: Spontaneous
  Country: US (occurrence: US)
  Receive Date: 20220131
  Receipt Date: 20220131
  Transmission Date: 20220423
  Serious: No
  Sender: FDA-Public Use
  Company Number: US-HETERO-HET2022US00214

PATIENT

DRUGS (1)
  1. RITONAVIR [Suspect]
     Active Substance: RITONAVIR
     Indication: COVID-19
     Dosage: 2 NIRMATRELVIR 150 MG TABLETS; 1 RITONAVIR 100 MG TABLET, 3 TABLETS TWICE A DAY
     Route: 065
     Dates: start: 20220113, end: 20220115

REACTIONS (2)
  - Product dispensing error [Unknown]
  - Product use issue [Unknown]

NARRATIVE: CASE EVENT DATE: 20220113
